FAERS Safety Report 22776850 (Version 8)
Quarter: 2023Q4

REPORT INFORMATION
  Report Type: Spontaneous
  Country: US (occurrence: US)
  Receive Date: 20230802
  Receipt Date: 20231221
  Transmission Date: 20240110
  Serious: Yes (Hospitalization)
  Sender: FDA-Public Use
  Company Number: US-PFIZER INC-PV202300131204

PATIENT
  Age: 49 Year
  Sex: Male

DRUGS (2)
  1. GENOTROPIN [Suspect]
     Active Substance: SOMATROPIN
     Dosage: 0.4 MG, DAILY
  2. GENOTROPIN [Suspect]
     Active Substance: SOMATROPIN
     Dosage: UNK
     Dates: start: 202302

REACTIONS (12)
  - Thyroid disorder [Unknown]
  - Visual impairment [Unknown]
  - Haemoptysis [Unknown]
  - Device difficult to use [Unknown]
  - Device issue [Unknown]
  - Injection site haemorrhage [Unknown]
  - Device mechanical issue [Unknown]
  - Device breakage [Unknown]
  - Poor quality device used [Unknown]
  - Device occlusion [Unknown]
  - Device leakage [Unknown]
  - Drug dose omission by device [Unknown]
